FAERS Safety Report 9155393 (Version 2)
Quarter: 2013Q1

REPORT INFORMATION
  Report Type: Spontaneous
  Country: JP (occurrence: JP)
  Receive Date: 20130311
  Receipt Date: 20130319
  Transmission Date: 20140127
  Serious: Yes (Other)
  Sender: FDA-Public Use
  Company Number: JP-PFIZER INC-2013078234

PATIENT
  Age: 22 Year
  Sex: Female

DRUGS (6)
  1. CISPLATIN [Suspect]
     Indication: YOLK SAC TUMOUR SITE UNSPECIFIED
     Dosage: UNK, CYCLIC
  2. CISPLATIN [Suspect]
     Indication: OVARIAN EMBRYONAL CARCINOMA
  3. ETOPOSIDE [Suspect]
     Indication: YOLK SAC TUMOUR SITE UNSPECIFIED
     Dosage: UNK, CYCLIC
  4. ETOPOSIDE [Suspect]
     Indication: OVARIAN EMBRYONAL CARCINOMA
  5. BLEOMYCIN [Suspect]
     Indication: YOLK SAC TUMOUR SITE UNSPECIFIED
     Dosage: UNK, CYCLIC
  6. BLEOMYCIN [Suspect]
     Indication: OVARIAN EMBRYONAL CARCINOMA

REACTIONS (1)
  - Thymus enlargement [Unknown]
